FAERS Safety Report 11837074 (Version 3)
Quarter: 2016Q3

REPORT INFORMATION
  Report Type: Spontaneous
  Country: TW (occurrence: TW)
  Receive Date: 20151215
  Receipt Date: 20160708
  Transmission Date: 20161109
  Serious: Yes (Other)
  Sender: FDA-Public Use
  Company Number: TW-AMGEN-TWNSP2015133040

PATIENT
  Age: 68 Year
  Sex: Female

DRUGS (7)
  1. ENBREL [Suspect]
     Active Substance: ETANERCEPT
     Dosage: 25 MG, BIW
     Route: 058
  2. SULFASALAZINE. [Concomitant]
     Active Substance: SULFASALAZINE
     Indication: RHEUMATOID ARTHRITIS
     Dosage: 1 G, QD
     Route: 048
  3. ENBREL [Suspect]
     Active Substance: ETANERCEPT
     Dosage: 25 MG, Q5D
     Route: 058
     Dates: start: 201503, end: 20151120
  4. METHOTREXATE (METHOTREXATE SODIUM) [Concomitant]
     Active Substance: METHOTREXATE SODIUM
     Indication: RHEUMATOID ARTHRITIS
     Dosage: 7.5 MG, QW
     Route: 048
  5. PREDNISOLONE. [Concomitant]
     Active Substance: PREDNISOLONE
     Indication: RHEUMATOID ARTHRITIS
     Dosage: 10 MG, QD
     Route: 048
  6. ENBREL [Suspect]
     Active Substance: ETANERCEPT
     Indication: RHEUMATOID ARTHRITIS
     Dosage: 25 MG, BIW
     Route: 058
     Dates: start: 201312
  7. QUININE [Concomitant]
     Active Substance: QUININE
     Indication: RHEUMATOID ARTHRITIS
     Dosage: 400 MG, QD
     Route: 048

REACTIONS (1)
  - Cataract [Recovering/Resolving]
